FAERS Safety Report 4307741-5 (Version None)
Quarter: 2004Q1

REPORT INFORMATION
  Report Type: 
  Country: None (occurrence: None)
  Receive Date: 20040227
  Receipt Date: 20040227
  Transmission Date: 20041129
  Serious: Yes (Hospitalization)
  Sender: FDA-Public Use
  Company Number: None

PATIENT
  Age: 48 Year
  Sex: Female

DRUGS (5)
  1. INTERFERON 20 MU SQ [Suspect]
  2. CIPRO [Concomitant]
  3. BENADRYL [Concomitant]
  4. MORPHINE [Concomitant]
  5. TYLENOL (CAPLET) [Concomitant]

REACTIONS (3)
  - BLOOD PRESSURE DECREASED [None]
  - DIZZINESS [None]
  - HAEMOGLOBIN DECREASED [None]
